FAERS Safety Report 15969377 (Version 1)
Quarter: 2019Q1

REPORT INFORMATION
  Report Type: Spontaneous
  Country: GB (occurrence: GB)
  Receive Date: 20190215
  Receipt Date: 20190215
  Transmission Date: 20190418
  Serious: Yes (Hospitalization)
  Sender: FDA-Public Use
  Company Number: GB-TEVA-2019-GB-1011718

PATIENT
  Age: 46 Year
  Sex: Female
  Weight: 55 kg

DRUGS (5)
  1. RIBAVIRIN. [Suspect]
     Active Substance: RIBAVIRIN
     Indication: CHRONIC HEPATITIS C
     Dosage: 1000 MILLIGRAM DAILY; 400MG MORNING AND 600MG NIGHT
     Route: 048
     Dates: start: 201810
  2. THIAMINE. [Concomitant]
     Active Substance: THIAMINE
  3. CODEINE [Concomitant]
     Active Substance: CODEINE
  4. HARVONI [Suspect]
     Active Substance: LEDIPASVIR\SOFOSBUVIR
     Indication: CHRONIC HEPATITIS C
     Dosage: 1 DOSAGE FORMS DAILY; 90/400MG.
     Route: 048
     Dates: start: 201810
  5. OMEPRAZOLE. [Concomitant]
     Active Substance: OMEPRAZOLE

REACTIONS (1)
  - Seizure [Recovered/Resolved]

NARRATIVE: CASE EVENT DATE: 20190117
